FAERS Safety Report 6731054-5 (Version None)
Quarter: 2010Q2

REPORT INFORMATION
  Report Type: 
  Country: None (occurrence: None)
  Receive Date: 20100514
  Receipt Date: 20100429
  Transmission Date: 20101027
  Serious: Yes (Hospitalization)
  Sender: FDA-Public Use
  Company Number: 230305J10GBR

PATIENT
  Age: 59 Year
  Sex: Female

DRUGS (1)
  1. REBIF [Suspect]
     Dosage: 22 MCG
     Dates: start: 20080501

REACTIONS (4)
  - FALL [None]
  - GAIT DISTURBANCE [None]
  - GASTRIC INFECTION [None]
  - MUSCLE SPASMS [None]
